FAERS Safety Report 15226825 (Version 1)
Quarter: 2018Q3

REPORT INFORMATION
  Report Type: Spontaneous
  Country: US (occurrence: US)
  Receive Date: 20180801
  Receipt Date: 20180801
  Transmission Date: 20181010
  Serious: Yes (Hospitalization, Other)
  Sender: FDA-Public Use
  Company Number: US-SA-2018SA187125

PATIENT
  Age: 17 Year
  Sex: Male

DRUGS (1)
  1. DIPHENHYDRAMINE. [Suspect]
     Active Substance: DIPHENHYDRAMINE
     Dosage: APPROXIMATELY 800 25?MG DIPHENHYDRAMINE TABLETS
     Route: 048

REACTIONS (9)
  - Overdose [Recovered/Resolved]
  - Ventricular fibrillation [Recovered/Resolved]
  - Arrhythmia [Recovered/Resolved]
  - Generalised tonic-clonic seizure [Recovered/Resolved]
  - Loss of consciousness [Recovered/Resolved]
  - Circulatory collapse [Recovered/Resolved]
  - Mental impairment [Recovered/Resolved]
  - Ventricular arrhythmia [Recovered/Resolved]
  - Cardiac arrest [Recovered/Resolved]
